FAERS Safety Report 13625589 (Version 1)
Quarter: 2017Q2

REPORT INFORMATION
  Report Type: Spontaneous
  Country: NO (occurrence: NO)
  Receive Date: 20170608
  Receipt Date: 20170608
  Transmission Date: 20170830
  Serious: Yes (Disabling)
  Sender: FDA-Public Use
  Company Number: NO-CONCORDIA PHARMACEUTICALS INC.-GSH201706-003353

PATIENT
  Sex: Female

DRUGS (7)
  1. VENLAFAXINE [Concomitant]
     Active Substance: VENLAFAXINE HYDROCHLORIDE
  2. PLAQUENIL [Suspect]
     Active Substance: HYDROXYCHLOROQUINE SULFATE
     Indication: SYSTEMIC LUPUS ERYTHEMATOSUS
     Route: 048
     Dates: start: 19861006, end: 20160520
  3. BRUFEN [Concomitant]
     Active Substance: IBUPROFEN
  4. NAPROSYN [Concomitant]
     Active Substance: NAPROXEN
  5. TOLVON [Concomitant]
     Active Substance: MIANSERIN
  6. VALIUM [Concomitant]
     Active Substance: DIAZEPAM
  7. PREDNISOLON [Concomitant]
     Active Substance: PREDNISOLONE

REACTIONS (8)
  - Maculopathy [Unknown]
  - Photophobia [Unknown]
  - Night blindness [Unknown]
  - Fatigue [Unknown]
  - Photosensitivity reaction [Unknown]
  - Vision blurred [Unknown]
  - Visual impairment [Unknown]
  - Blindness unilateral [Unknown]

NARRATIVE: CASE EVENT DATE: 20160101
